FAERS Safety Report 25367696 (Version 3)
Quarter: 2025Q2

REPORT INFORMATION
  Report Type: Report from Study
  Country: DE (occurrence: DE)
  Receive Date: 20250528
  Receipt Date: 20250620
  Transmission Date: 20250717
  Serious: Yes (Hospitalization)
  Sender: MERCK SHARP & DOHME LLC
  Company Number: DE-ASTRAZENECA-202504GLO015886DE

PATIENT
  Age: 64 Year
  Sex: Female

DRUGS (13)
  1. PEMBROLIZUMAB [Suspect]
     Active Substance: PEMBROLIZUMAB
     Indication: Triple negative breast cancer
     Dosage: 200 MG, ONCE EVERY 3 WK
     Route: 042
     Dates: start: 20240515, end: 20240515
  2. PEMBROLIZUMAB [Suspect]
     Active Substance: PEMBROLIZUMAB
     Indication: Triple negative breast cancer
     Dosage: 200 MG, ONCE EVERY 3 WK
     Route: 042
     Dates: start: 20240605, end: 20250401
  3. CARBOPLATIN [Suspect]
     Active Substance: CARBOPLATIN
     Indication: Triple negative breast cancer
     Route: 042
     Dates: start: 20240515, end: 20240731
  4. AMARA PASCOE [Concomitant]
     Indication: Nausea
     Dates: start: 20240529
  5. SESAME OIL [Concomitant]
     Active Substance: SESAME OIL
     Indication: Nasal dryness
     Dates: start: 20240606
  6. DEXAMETHASONE SODIUM PHOSPHATE [Concomitant]
     Active Substance: DEXAMETHASONE SODIUM PHOSPHATE
     Indication: Nasal dryness
     Dosage: 8 MILLIGRAM, TID
     Dates: start: 20240924
  7. CYCLOPHOSPHAMIDE [Suspect]
     Active Substance: CYCLOPHOSPHAMIDE
     Indication: Triple negative breast cancer
     Dosage: 600 MG/M2, ONCE EVERY 3 WK
     Route: 042
     Dates: start: 20240813, end: 20241015
  8. CAPECITABINE [Suspect]
     Active Substance: CAPECITABINE
     Indication: Triple negative breast cancer
  9. THYROX [Concomitant]
     Indication: Hypothyroidism
     Dates: start: 20231201
  10. EPIRUBICIN [Suspect]
     Active Substance: EPIRUBICIN
     Indication: Triple negative breast cancer
     Dosage: 90 MG/M2, ONCE EVERY 3 WK
     Route: 042
     Dates: start: 20240813, end: 20241015
  11. GOLDEN [CEFODIZIME DISODIUM] [Concomitant]
     Indication: Biopsy kidney
     Dosage: 5.00 GTT TWICE PER DAY
     Dates: start: 20240626
  12. PACLITAXEL [Suspect]
     Active Substance: PACLITAXEL
     Indication: Triple negative breast cancer
     Dosage: 80 MG/M2, ONCE EVERY 3 WK
     Dates: start: 20240515, end: 20240731
  13. EUPHRASIA [Concomitant]
     Indication: Dry eye
     Route: 047
     Dates: start: 20240508

REACTIONS (1)
  - Bronchitis [Not Recovered/Not Resolved]

NARRATIVE: CASE EVENT DATE: 20250417
